FAERS Safety Report 7756718-6 (Version None)
Quarter: 2011Q3

REPORT INFORMATION
  Report Type: 
  Country: None (occurrence: None)
  Receive Date: 20110915
  Receipt Date: 20110915
  Transmission Date: 20111222
  Serious: Yes (Hospitalization)
  Sender: FDA-Public Use
  Company Number: None

PATIENT
  Age: 70 Year
  Sex: Female
  Weight: 81 kg

DRUGS (5)
  1. NIFEDIPINE [Concomitant]
  2. PEPCID [Concomitant]
  3. DEXAMETHASONE [Concomitant]
  4. SUNITINIB MALATE [Suspect]
     Indication: METASTASES TO CENTRAL NERVOUS SYSTEM
     Dosage: 37.5MG DAILY ORAL 8/3 - 8/25
     Route: 048
  5. METOPROLOL SUCCINATE EXTENDED RELEASE [Concomitant]

REACTIONS (4)
  - BLOOD CREATINE INCREASED [None]
  - BLOOD UREA INCREASED [None]
  - BLOOD POTASSIUM INCREASED [None]
  - DYSGEUSIA [None]
